FAERS Safety Report 11614622 (Version 1)
Quarter: 2015Q4

REPORT INFORMATION
  Report Type: Spontaneous
  Country: TR (occurrence: TR)
  Receive Date: 20151009
  Receipt Date: 20151009
  Transmission Date: 20160304
  Serious: Yes (Hospitalization)
  Sender: FDA-Public Use
  Company Number: TR-ROCHE-1642497

PATIENT
  Sex: Female

DRUGS (1)
  1. PEGASYS [Suspect]
     Active Substance: PEGINTERFERON ALFA-2A
     Indication: CHRONIC HEPATITIS B
     Route: 065

REACTIONS (2)
  - Hepatitis B [Unknown]
  - Maternal exposure during pregnancy [Unknown]
